FAERS Safety Report 8403236-8 (Version None)
Quarter: 2012Q2

REPORT INFORMATION
  Report Type: 
  Country: None (occurrence: None)
  Receive Date: 20120601
  Receipt Date: 20120524
  Transmission Date: 20120825
  Serious: Yes (Hospitalization, Disabling, Other)
  Sender: FDA-Public Use
  Company Number: US-MERCK-1110USA02439

PATIENT
  Age: 72 Year
  Sex: Female

DRUGS (3)
  1. ALENDRONATE SODIUM [Suspect]
     Indication: OSTEOPOROSIS
     Route: 048
     Dates: start: 20080313, end: 20091124
  2. FOSAMAX [Suspect]
     Route: 048
  3. FOSAMAX [Suspect]
     Indication: OSTEOPOROSIS
     Route: 048
     Dates: start: 20020422, end: 20080130

REACTIONS (33)
  - ANAEMIA [None]
  - BACK PAIN [None]
  - EMPHYSEMA [None]
  - COLONIC POLYP [None]
  - RENAL FAILURE CHRONIC [None]
  - CONTUSION [None]
  - SALIVARY GLAND CANCER [None]
  - ARTHRITIS [None]
  - HERPES ZOSTER [None]
  - SINUS TACHYCARDIA [None]
  - PAIN [None]
  - FALL [None]
  - MUSCULOSKELETAL CHEST PAIN [None]
  - LOW TURNOVER OSTEOPATHY [None]
  - ROAD TRAFFIC ACCIDENT [None]
  - GALLBLADDER DISORDER [None]
  - CORONARY ARTERY DISEASE [None]
  - NECK PAIN [None]
  - MUSCLE SPASMS [None]
  - IRON DEFICIENCY ANAEMIA [None]
  - SLEEP DISORDER [None]
  - CHRONIC OBSTRUCTIVE PULMONARY DISEASE [None]
  - HYPERCHOLESTEROLAEMIA [None]
  - HAND FRACTURE [None]
  - FEMUR FRACTURE [None]
  - ADVERSE EVENT [None]
  - ASTHMA [None]
  - OSTEOARTHRITIS [None]
  - POST PROCEDURAL HAEMORRHAGE [None]
  - MITRAL VALVE INCOMPETENCE [None]
  - SPINAL OSTEOARTHRITIS [None]
  - NEURALGIA [None]
  - BENIGN BREAST NEOPLASM [None]
